FAERS Safety Report 9846047 (Version 1)
Quarter: 2014Q1

REPORT INFORMATION
  Report Type: Report from Study
  Country: RU (occurrence: RU)
  Receive Date: 20140127
  Receipt Date: 20140127
  Transmission Date: 20141002
  Serious: Yes (Death)
  Sender: FDA-Public Use
  Company Number: RU-SA-2014SA007119

PATIENT
  Sex: Male

DRUGS (1)
  1. PLAVIX [Suspect]
     Indication: ARTERIAL THROMBOSIS
     Route: 048
     Dates: start: 201303

REACTIONS (1)
  - Death [Fatal]
